FAERS Safety Report 7379876-4 (Version None)
Quarter: 2011Q1

REPORT INFORMATION
  Report Type: 
  Country: None (occurrence: None)
  Receive Date: 20110329
  Receipt Date: 20110316
  Transmission Date: 20110831
  Serious: Yes (Other)
  Sender: FDA-Public Use
  Company Number: JP-JNJFOC-20110305587

PATIENT
  Sex: Male

DRUGS (8)
  1. CLARITHROMYCIN [Concomitant]
     Indication: BRONCHITIS
     Route: 065
  2. CRAVIT [Suspect]
     Indication: BRONCHITIS
     Route: 048
  3. CALONAL [Concomitant]
     Indication: PYREXIA
     Route: 048
  4. KIPRES [Concomitant]
     Indication: BRONCHITIS
     Route: 048
  5. NORVASC [Concomitant]
     Indication: HYPERTENSION
     Route: 048
  6. MUCODYNE [Concomitant]
     Indication: BRONCHITIS
     Route: 048
  7. ASTOMIN [Concomitant]
     Indication: BRONCHITIS
     Route: 048
  8. TELMISARTAN [Concomitant]
     Indication: HYPERTENSION
     Route: 048

REACTIONS (4)
  - HYPOXIA [None]
  - DRUG ERUPTION [None]
  - STEVENS-JOHNSON SYNDROME [None]
  - HYPOTENSION [None]
